FAERS Safety Report 14829356 (Version 4)
Quarter: 2023Q1

REPORT INFORMATION
  Report Type: Spontaneous
  Country: US (occurrence: None)
  Receive Date: 20180430
  Receipt Date: 20230227
  Transmission Date: 20230418
  Serious: Yes (Other)
  Sender: FDA-Public Use
  Company Number: 2018SE50264

PATIENT
  Sex: Female
  Weight: 114.3 kg

DRUGS (32)
  1. NEXIUM [Suspect]
     Active Substance: ESOMEPRAZOLE MAGNESIUM
     Indication: Gastrooesophageal reflux disease
     Route: 048
     Dates: start: 2004, end: 2016
  2. NEXIUM [Suspect]
     Active Substance: ESOMEPRAZOLE MAGNESIUM
     Indication: Gastrooesophageal reflux disease
     Route: 048
     Dates: start: 2004, end: 2016
  3. NEXIUM [Suspect]
     Active Substance: ESOMEPRAZOLE MAGNESIUM
     Indication: Abdominal pain upper
     Route: 048
     Dates: start: 2004, end: 2016
  4. NEXIUM 24HR [Suspect]
     Active Substance: ESOMEPRAZOLE MAGNESIUM
     Route: 048
  5. PRILOSEC [Suspect]
     Active Substance: OMEPRAZOLE MAGNESIUM
     Indication: Gastrooesophageal reflux disease
     Route: 048
  6. PRILOSEC [Suspect]
     Active Substance: OMEPRAZOLE MAGNESIUM
     Indication: Gastrooesophageal reflux disease
     Route: 048
  7. PRILOSEC [Suspect]
     Active Substance: OMEPRAZOLE MAGNESIUM
     Indication: Abdominal pain upper
     Route: 048
  8. PRILOSEC OTC [Suspect]
     Active Substance: OMEPRAZOLE MAGNESIUM
     Route: 048
  9. DEXILANT [Suspect]
     Active Substance: DEXLANSOPRAZOLE
     Route: 065
  10. PREVACID [Suspect]
     Active Substance: LANSOPRAZOLE
     Route: 065
  11. PREVACID 24 HR [Suspect]
     Active Substance: LANSOPRAZOLE
     Route: 065
  12. PROTONIX [Suspect]
     Active Substance: PANTOPRAZOLE SODIUM
     Indication: Gastrooesophageal reflux disease
     Route: 065
  13. PROTONIX [Suspect]
     Active Substance: PANTOPRAZOLE SODIUM
     Indication: Gastrooesophageal reflux disease
     Route: 065
  14. PROTONIX [Suspect]
     Active Substance: PANTOPRAZOLE SODIUM
     Indication: Abdominal pain upper
     Route: 065
  15. ASPIRIN [Concomitant]
     Active Substance: ASPIRIN
  16. CODEINE [Concomitant]
     Active Substance: CODEINE
  17. AMLODIPINE [Concomitant]
     Active Substance: AMLODIPINE BESYLATE
  18. NEBIVOLOL [Concomitant]
     Active Substance: NEBIVOLOL
  19. PENICILLIN [Concomitant]
     Active Substance: PENICILLIN
  20. ACETYLSALICYLIC ACID/DIPHENYLPYRALINE HYDROCHLORIDE/TETRACYCLINE HYDRO [Concomitant]
  21. HYOSCYAMINE [Concomitant]
     Active Substance: HYOSCYAMINE
  22. TORADOL [Concomitant]
     Active Substance: KETOROLAC TROMETHAMINE
  23. ANAPROX [Concomitant]
     Active Substance: NAPROXEN SODIUM
  24. ULTRAM [Concomitant]
     Active Substance: TRAMADOL HYDROCHLORIDE
  25. CEPOL [Concomitant]
  26. LEVAQUIN [Concomitant]
     Active Substance: LEVOFLOXACIN
  27. PRINIVIL [Concomitant]
     Active Substance: LISINOPRIL
  28. ZESTRIL [Concomitant]
     Active Substance: LISINOPRIL
  29. BUMEX [Concomitant]
     Active Substance: BUMETANIDE
  30. LASIX [Concomitant]
     Active Substance: FUROSEMIDE
  31. ALDACTONE [Concomitant]
     Active Substance: SPIRONOLACTONE
  32. DEMADEX [Concomitant]
     Active Substance: TORSEMIDE

REACTIONS (4)
  - Chronic kidney disease [Unknown]
  - Renal failure [Unknown]
  - Rebound acid hypersecretion [Unknown]
  - Renal injury [Unknown]
